FAERS Safety Report 6881310-5 (Version None)
Quarter: 2010Q2

REPORT INFORMATION
  Report Type: 
  Country: None (occurrence: None)
  Receive Date: 20100630
  Receipt Date: 20100618
  Transmission Date: 20101027
  Serious: No
  Sender: FDA-Public Use
  Company Number: 2010-00482

PATIENT
  Age: 53 Year
  Sex: Female
  Weight: 65.7716 kg

DRUGS (3)
  1. ZICAM COLD REMEDY GEL SWABS [Suspect]
     Dosage: QD X 7 DAYS
     Dates: start: 20081201
  2. ATEBIKIK [Concomitant]
  3. MULTI-VITAMIN [Concomitant]

REACTIONS (1)
  - ANOSMIA [None]
